FAERS Safety Report 10089668 (Version 2)
Quarter: 2014Q2

REPORT INFORMATION
  Report Type: Spontaneous
  Country: US (occurrence: US)
  Receive Date: 20140421
  Receipt Date: 20140604
  Transmission Date: 20141212
  Serious: No
  Sender: FDA-Public Use
  Company Number: US-PFIZER INC-2014108650

PATIENT
  Sex: Male

DRUGS (1)
  1. ADVIL [Suspect]
     Indication: PAIN
     Dosage: UNK

REACTIONS (3)
  - Drug effect incomplete [Unknown]
  - Product shape issue [Unknown]
  - Product quality issue [Unknown]
